FAERS Safety Report 20350413 (Version 2)
Quarter: 2022Q3

REPORT INFORMATION
  Report Type: Spontaneous
  Country: US (occurrence: US)
  Receive Date: 20220119
  Receipt Date: 20220829
  Transmission Date: 20221026
  Serious: Yes (Life-Threatening, Other)
  Sender: FDA-Public Use
  Company Number: None

PATIENT
  Age: 3 Year
  Sex: Male
  Weight: 30.4 kg

DRUGS (9)
  1. DACTINOMYCIN [Suspect]
     Active Substance: DACTINOMYCIN
     Indication: Embryonal rhabdomyosarcoma
     Dosage: 0.05 MG/KG OVER 1-5 MINUTES ON DAY 1 OF CYCLES 1 AND 3, ON DAY 1 OF CYCLES 5, 8 AND 10 AND ON DAY 1
     Route: 042
     Dates: start: 20180823
  2. DACTINOMYCIN [Suspect]
     Active Substance: DACTINOMYCIN
     Dosage: TOTAL DOSE OF 0.6 MG ON DAY OF CYCLE 14
     Route: 042
     Dates: start: 20190610, end: 20190610
  3. TEMSIROLIMUS [Suspect]
     Active Substance: TEMSIROLIMUS
     Indication: Embryonal rhabdomyosarcoma
     Dosage: 15 MG/M2 DURING 30 TO 60 MINUTES ON DAYS 1, 8 AND 15 (DURING CYCLES 1-4, 8, 9 AND 10 AND 11-13)
     Route: 042
     Dates: start: 20180823
  4. TEMSIROLIMUS [Suspect]
     Active Substance: TEMSIROLIMUS
     Dosage: CYCLE 14, ON DAYS 1, 8, 15
     Route: 042
     Dates: start: 20190610
  5. VINCRISTINE SULFATE [Suspect]
     Active Substance: VINCRISTINE SULFATE
     Indication: Embryonal rhabdomyosarcoma
     Dosage: 1.5 MG/M2 FOR PATIENTS NO LESS THAN 0.6 M2 OR PER DOSING TABLE FOR PATIENTS LESS THAN 0.6 M2 OVER ON
     Route: 042
     Dates: start: 20180823
  6. VINCRISTINE SULFATE [Suspect]
     Active Substance: VINCRISTINE SULFATE
     Dosage: TOTAL DOSE OF 0.9 MG, CYCLE 14, DAY 1
     Route: 042
     Dates: start: 20190610
  7. CAMPTOSAR [Suspect]
     Active Substance: IRINOTECAN HYDROCHLORIDE
     Indication: Embryonal rhabdomyosarcoma
     Dosage: 50 MG/M2 FOR PATIENTS NO LESS THAN 0.6 M2 (MAX DOSE 100 MG) OR PER DOSING TABLE FOR PATIENTS LESS TH
     Route: 042
     Dates: start: 20180823
  8. CYCLOPHOSPHAMIDE [Suspect]
     Active Substance: CYCLOPHOSPHAMIDE
     Indication: Embryonal rhabdomyosarcoma
     Dosage: 1200 MG/M2 FOR PATIENTS NO LESS THAN 0.6 M2 OR PER DOSING TABLE FOR PATIENTS LESS THAN 0.6 M2 OVER 6
     Route: 042
     Dates: start: 20180823
  9. CYCLOPHOSPHAMIDE [Suspect]
     Active Substance: CYCLOPHOSPHAMIDE
     Dosage: CYCLE 14, DAY 1
     Route: 042
     Dates: start: 20190610

REACTIONS (1)
  - Neutrophil count decreased [Recovering/Resolving]

NARRATIVE: CASE EVENT DATE: 20190617
